FAERS Safety Report 13008960 (Version 2)
Quarter: 2017Q1

REPORT INFORMATION
  Report Type: Spontaneous
  Country: IT (occurrence: IT)
  Receive Date: 20161208
  Receipt Date: 20170223
  Transmission Date: 20170428
  Serious: Yes (Hospitalization)
  Sender: FDA-Public Use
  Company Number: IT-SA-2016SA219184

PATIENT
  Age: 70 Year
  Sex: Female

DRUGS (8)
  1. ZOPRANOL [Concomitant]
     Active Substance: ZOFENOPRIL
  2. ALMARYTM [Concomitant]
     Active Substance: FLECAINIDE ACETATE
     Dosage: 2 DOSAGE UNIT
     Route: 048
  3. METFORMIN HYDROCHLORIDE. [Concomitant]
     Active Substance: METFORMIN HYDROCHLORIDE
     Route: 048
  4. PROVISACOR [Concomitant]
     Active Substance: ROSUVASTATIN
  5. FERLIXIT [Suspect]
     Active Substance: SODIUM FERRIC GLUCONATE COMPLEX
     Indication: IRON DEFICIENCY ANAEMIA
     Dosage: DOSE:1 UNIT(S)
     Route: 042
     Dates: start: 20161005, end: 20161025
  6. PRADAXA [Concomitant]
     Active Substance: DABIGATRAN ETEXILATE MESYLATE
     Indication: ATRIAL FIBRILLATION
     Route: 048
  7. ESKIM [Concomitant]
     Active Substance: OMEGA-3 FATTY ACIDS
     Dosage: 1 DOSAGE UNIT
     Route: 048
  8. LANSOPRAZOLE. [Concomitant]
     Active Substance: LANSOPRAZOLE
     Route: 048

REACTIONS (3)
  - Hyperhidrosis [Recovered/Resolved]
  - Retching [Recovered/Resolved]
  - Hypotension [Recovered/Resolved]

NARRATIVE: CASE EVENT DATE: 20161025
